FAERS Safety Report 4287619-6 (Version None)
Quarter: 2004Q1

REPORT INFORMATION
  Report Type: 
  Country: None (occurrence: None)
  Receive Date: 20040205
  Receipt Date: 20040119
  Transmission Date: 20041129
  Serious: Yes (Other)
  Sender: FDA-Public Use
  Company Number: USA040156917

PATIENT
  Age: 31 Year
  Sex: Female
  Weight: 89 kg

DRUGS (5)
  1. STRATTERA [Suspect]
     Dosage: 25 MG/ TWICE DAY
  2. TRILEPTAL [Concomitant]
  3. KEPPRA [Concomitant]
  4. RANITIDINE [Concomitant]
  5. SEROQUEL [Concomitant]

REACTIONS (3)
  - BURNING SENSATION [None]
  - CONDITION AGGRAVATED [None]
  - GRAND MAL CONVULSION [None]
